FAERS Safety Report 8258436-7 (Version None)
Quarter: 2012Q1

REPORT INFORMATION
  Report Type: 
  Country: None (occurrence: None)
  Receive Date: 20120322
  Receipt Date: 20120202
  Transmission Date: 20120608
  Serious: Yes (Hospitalization)
  Sender: FDA-Public Use
  Company Number: UTC-013988

PATIENT
  Age: 63 Year
  Sex: Male
  Weight: 136.4 kg

DRUGS (4)
  1. TYVASO [Suspect]
     Indication: PULMONARY ARTERIAL HYPERTENSION
     Dosage: 216 MCG (54 MCG, 4 IN 1 D),INHALATION
     Route: 055
     Dates: start: 20100629
  2. LETAIRIS [Concomitant]
  3. ADCIRCA [Concomitant]
  4. DIURETICS (DIURETICS) [Concomitant]

REACTIONS (2)
  - CHOKING [None]
  - PNEUMONIA [None]
